FAERS Safety Report 13828254 (Version 1)
Quarter: 2017Q3

REPORT INFORMATION
  Report Type: Spontaneous
  Country: US (occurrence: US)
  Receive Date: 20170802
  Receipt Date: 20170802
  Transmission Date: 20171127
  Serious: Yes (Hospitalization)
  Sender: FDA-Public Use
  Company Number: None

PATIENT
  Age: 69 Year
  Sex: Male
  Weight: 75.66 kg

DRUGS (1)
  1. ALPRAZOLAM. [Suspect]
     Active Substance: ALPRAZOLAM
     Indication: HYPOXIA
     Route: 060
     Dates: start: 20170725, end: 20170725

REACTIONS (2)
  - Acute respiratory failure [None]
  - Pneumonia [None]

NARRATIVE: CASE EVENT DATE: 20170726
